FAERS Safety Report 6252067-6 (Version None)
Quarter: 2009Q2

REPORT INFORMATION
  Report Type: 
  Country: None (occurrence: None)
  Receive Date: 20090629
  Receipt Date: 20090429
  Transmission Date: 20091009
  Serious: Yes (Other)
  Sender: FDA-Public Use
  Company Number: 000928

PATIENT
  Sex: Female
  Weight: 75 kg

DRUGS (3)
  1. NEUPRO [Suspect]
     Indication: PARKINSON'S DISEASE
     Dosage: (6 MG QD TRANSDERMAL)
     Route: 062
     Dates: start: 20090219, end: 20090315
  2. STALEVO 100 [Concomitant]
  3. AMANTADINE HCL [Concomitant]

REACTIONS (6)
  - AGORAPHOBIA [None]
  - ANXIETY [None]
  - DEPRESSED MOOD [None]
  - DRUG EFFECT DECREASED [None]
  - PHOBIA [None]
  - QUALITY OF LIFE DECREASED [None]
